FAERS Safety Report 22398757 (Version 1)
Quarter: 2023Q2

REPORT INFORMATION
  Report Type: Report from Study
  Country: US (occurrence: US)
  Receive Date: 20230602
  Receipt Date: 20230602
  Transmission Date: 20230721
  Serious: Yes (Other)
  Sender: FDA-Public Use
  Company Number: US-TAKEDA-US202024069

PATIENT
  Sex: Female

DRUGS (1)
  1. HUMAN IMMUNOGLOBULIN G [Suspect]
     Active Substance: HUMAN IMMUNOGLOBULIN G
     Indication: Immunodeficiency
     Dosage: UNK
     Route: 042
     Dates: end: 2022

REACTIONS (6)
  - Thyroid cancer [Unknown]
  - Lymphoma [Unknown]
  - Contusion [Unknown]
  - Proteus infection [Unknown]
  - Discomfort [Unknown]
  - Inappropriate schedule of product administration [Not Recovered/Not Resolved]
